FAERS Safety Report 16818959 (Version 1)
Quarter: 2019Q3

REPORT INFORMATION
  Report Type: Spontaneous
  Country: US (occurrence: US)
  Receive Date: 20190917
  Receipt Date: 20190917
  Transmission Date: 20191005
  Serious: Yes (Hospitalization)
  Sender: FDA-Public Use
  Company Number: US-TEVA-2019-US-1108527

PATIENT
  Age: 2 Week
  Sex: Male

DRUGS (1)
  1. BUPRENORPHINE. [Suspect]
     Active Substance: BUPRENORPHINE
     Route: 063

REACTIONS (2)
  - Drug withdrawal syndrome neonatal [Recovering/Resolving]
  - Exposure via breast milk [Unknown]
